FAERS Safety Report 25667428 (Version 1)
Quarter: 2025Q3

REPORT INFORMATION
  Report Type: Spontaneous
  Country: EG (occurrence: EG)
  Receive Date: 20250811
  Receipt Date: 20250811
  Transmission Date: 20251021
  Serious: Yes (Hospitalization, Other)
  Sender: NOVO NORDISK
  Company Number: EG-NOVOPROD-1492612

PATIENT
  Sex: Male

DRUGS (1)
  1. NOVORAPID [Suspect]
     Active Substance: INSULIN ASPART
     Indication: Diabetes mellitus
     Dosage: 30 IU, QD(10U IN THE MORNING, 12U IN THE AFTERNOON, 8U AT THE NIGHTV)
     Route: 058

REACTIONS (6)
  - Urinary tract infection [Unknown]
  - Ureterolithiasis [Unknown]
  - Renal impairment [Unknown]
  - Vesicoureteric reflux [Unknown]
  - Pneumonia [Unknown]
  - Diabetic ketoacidosis [Unknown]
